FAERS Safety Report 22522261 (Version 1)
Quarter: 2023Q2

REPORT INFORMATION
  Report Type: Spontaneous
  Country: KR (occurrence: KR)
  Receive Date: 20230605
  Receipt Date: 20230605
  Transmission Date: 20230722
  Serious: Yes (Hospitalization)
  Sender: FDA-Public Use
  Company Number: KR-ORGANON-O2305KOR003113

PATIENT
  Age: 45 Year
  Sex: Female
  Weight: 68 kg

DRUGS (7)
  1. COZAAR [Suspect]
     Active Substance: LOSARTAN POTASSIUM
     Dosage: 50 MILLIGRAM, ONCE A DAY (QD) (FILM COATED TABLET)
     Route: 048
     Dates: start: 20170824
  2. MONTELUKAST SODIUM [Concomitant]
     Active Substance: MONTELUKAST SODIUM
     Dosage: 10 MILLIGRAM,  ONCE A DAY (QD)
     Route: 048
  3. TULOBUTEROL [Concomitant]
     Active Substance: TULOBUTEROL
     Dosage: 1 FORMULATION, ONCE A DAY (QD) (EXTENDED-RELEASE TRANSDERMAL SYSTEM) (ROUTE: EXTERNAL)
     Dates: start: 20190122
  4. FEXOFENADINE HYDROCHLORIDE [Concomitant]
     Active Substance: FEXOFENADINE HYDROCHLORIDE
     Dosage: 120 MILLIGRAM, ONCE A DAY (QD)
     Route: 048
     Dates: start: 20190122
  5. SODIUM ALGINATE [Concomitant]
     Active Substance: SODIUM ALGINATE
     Dosage: 20 MILLILITER, TID (0.33/ DAY) (LIQUID SYRUP)
     Route: 048
     Dates: start: 20190701, end: 20190704
  6. ACETAMINOPHEN\TRAMADOL HYDROCHLORIDE [Concomitant]
     Active Substance: ACETAMINOPHEN\TRAMADOL HYDROCHLORIDE
     Dosage: 1 FORMULATION (SLOW-RELEASE FILM-COATED TABLETS)
     Route: 048
     Dates: start: 20190604, end: 20190606
  7. MOSAPRIDE CITRATE DIHYDRATE [Concomitant]
     Active Substance: MOSAPRIDE CITRATE DIHYDRATE
     Dosage: 5 MILLIGRAM
     Route: 048
     Dates: start: 20190604, end: 20190606

REACTIONS (1)
  - Colitis [Recovered/Resolved]

NARRATIVE: CASE EVENT DATE: 20190701
